FAERS Safety Report 7121024-X (Version None)
Quarter: 2010Q4

REPORT INFORMATION
  Report Type: 
  Country: None (occurrence: None)
  Receive Date: 20101124
  Receipt Date: 20101115
  Transmission Date: 20110411
  Serious: Yes (Hospitalization, Other)
  Sender: FDA-Public Use
  Company Number: US-JNJFOC-20101105273

PATIENT
  Sex: Female
  Weight: 77.11 kg

DRUGS (1)
  1. LEVAQUIN [Suspect]
     Indication: URINARY TRACT INFECTION
     Route: 048

REACTIONS (8)
  - ANXIETY [None]
  - CONVULSION [None]
  - HAEMOGLOBIN DECREASED [None]
  - INSOMNIA [None]
  - MENTAL IMPAIRMENT [None]
  - MUSCLE SPASMS [None]
  - STENT MALFUNCTION [None]
  - WHITE BLOOD CELL COUNT INCREASED [None]
